FAERS Safety Report 14594655 (Version 7)
Quarter: 2019Q4

REPORT INFORMATION
  Report Type: Report from Study
  Country: US (occurrence: US)
  Receive Date: 20180302
  Receipt Date: 20191120
  Transmission Date: 20200122
  Serious: Yes (Hospitalization, Other)
  Sender: FDA-Public Use
  Company Number: US-ACTELION-A-US2018-168198

PATIENT
  Age: 49 Year
  Sex: Female

DRUGS (45)
  1. PROMANTINE [Concomitant]
     Dosage: UNK
     Route: 048
     Dates: start: 20170208
  2. NORMODYNE [Concomitant]
     Active Substance: LABETALOL HYDROCHLORIDE
     Dosage: 200 MG, QD
     Dates: start: 20161128
  3. ZITHROMAX [Concomitant]
     Active Substance: AZITHROMYCIN DIHYDRATE
     Dosage: 250 MG, QD
     Dates: start: 20171207
  4. NALOXONE [Concomitant]
     Active Substance: NALOXONE
  5. OPSUMIT [Suspect]
     Active Substance: MACITENTAN
     Indication: PULMONARY ARTERIAL HYPERTENSION
     Dosage: 10 MG, QD
     Route: 048
     Dates: start: 20170113
  6. ATIVAN [Concomitant]
     Active Substance: LORAZEPAM
     Dosage: UNK, QD
     Dates: start: 20171214
  7. TOPROL XL [Concomitant]
     Active Substance: METOPROLOL SUCCINATE
     Dosage: 25 MG, QD
     Dates: start: 20170905
  8. SENSIPAR [Concomitant]
     Active Substance: CINACALCET HYDROCHLORIDE
     Dosage: 30 MG, QD
     Route: 048
     Dates: start: 2010
  9. AVENTYL [Concomitant]
     Active Substance: NORTRIPTYLINE HYDROCHLORIDE
     Dosage: 200 MG, QD, 2 CAPSULES AT BEDTIME
     Dates: start: 20170303
  10. ESTRACE [Concomitant]
     Active Substance: ESTRADIOL
  11. BENZONATATE. [Concomitant]
     Active Substance: BENZONATATE
  12. NORTRIPTYLINE [Concomitant]
     Active Substance: NORTRIPTYLINE
  13. MIDODRINE [Concomitant]
     Active Substance: MIDODRINE
     Dosage: 5 MG, UNK
     Dates: start: 2017
  14. CYCLOBENZAPRINE. [Concomitant]
     Active Substance: CYCLOBENZAPRINE
  15. CINACALCET. [Concomitant]
     Active Substance: CINACALCET
  16. ZYRTEC [Concomitant]
     Active Substance: CETIRIZINE HYDROCHLORIDE
     Dosage: 10 MG, QD
     Dates: start: 20140917
  17. QVAR [Concomitant]
     Active Substance: BECLOMETHASONE DIPROPIONATE
     Dosage: 80 MCG, UNK
     Dates: start: 2014
  18. RENVELA [Concomitant]
     Active Substance: SEVELAMER CARBONATE
     Dosage: 800 MG, TID
     Route: 048
     Dates: start: 2013
  19. LIDOCAINE 5% EXTRA [Concomitant]
     Dosage: UNK, BID
     Route: 061
     Dates: start: 20170317
  20. METOPROLOL. [Concomitant]
     Active Substance: METOPROLOL
     Dosage: 25 MG, QD
     Dates: start: 2016, end: 201803
  21. EFFEXOR [Concomitant]
     Active Substance: VENLAFAXINE HYDROCHLORIDE
  22. HYOSCYAMINE. [Concomitant]
     Active Substance: HYOSCYAMINE
  23. ASTELIN [Concomitant]
     Active Substance: AZELASTINE HYDROCHLORIDE
  24. PROCARDIA [Concomitant]
     Active Substance: NIFEDIPINE
     Dosage: 30 MG, QD
     Route: 048
     Dates: start: 20170828
  25. CIPRO [Concomitant]
     Active Substance: CIPROFLOXACIN HYDROCHLORIDE
     Dosage: 250 MG, BID
     Dates: start: 201802, end: 201803
  26. TRAMADOL. [Concomitant]
     Active Substance: TRAMADOL
  27. VENTOLIN [Concomitant]
     Active Substance: ALBUTEROL SULFATE
     Dosage: 90 MCG, UNK
     Dates: start: 20170713
  28. VOLTAREN [Concomitant]
     Active Substance: DICLOFENAC SODIUM
     Dosage: 1 %, UNK
  29. TYLENOL WITH CODEINE [Concomitant]
     Active Substance: ACETAMINOPHEN\CODEINE PHOSPHATE
     Dosage: 1-2 TAB Q4 ORN
     Dates: start: 2014
  30. COUMADIN [Concomitant]
     Active Substance: WARFARIN SODIUM
  31. DIPROLENE AF [Concomitant]
     Active Substance: BETAMETHASONE DIPROPIONATE
     Dosage: 0.05 %, BID
     Route: 061
     Dates: start: 20170124
  32. PRILOSEC [Concomitant]
     Active Substance: OMEPRAZOLE MAGNESIUM
     Dosage: 200 UNK, BID
     Dates: start: 20171214
  33. PROCTOZONE HC [Concomitant]
     Active Substance: HYDROCORTISONE
     Dosage: 2.5 %, TID
     Route: 054
  34. PERCOCET [Concomitant]
     Active Substance: ACETAMINOPHEN\OXYCODONE HYDROCHLORIDE
     Dosage: 7.5/325
     Dates: start: 20170830
  35. LORAZEPAM. [Concomitant]
     Active Substance: LORAZEPAM
     Dosage: 1/2 TO 1 MG PRN
     Dates: start: 201803
  36. NEPHRO VITE RX [Concomitant]
     Active Substance: ASCORBIC ACID\BIOTIN\CALCIUM PANTOTHENATE\CYANOCOBALAMIN\FOLIC ACID\NIACINAMIDE\PYRIDOXINE HYDROCHLORIDE\RIBOFLAVIN\THIAMINE MONONITRATE
     Dosage: 1 UNK, QD
     Dates: start: 2014
  37. ATROVENT [Concomitant]
     Active Substance: IPRATROPIUM BROMIDE
  38. ALBUTEROL. [Concomitant]
     Active Substance: ALBUTEROL
  39. FLONASE [Concomitant]
     Active Substance: FLUTICASONE PROPIONATE
     Dosage: 2 SPAYS EACH NOSTRIL QD
     Dates: start: 20170113
  40. VITAMIN B COMPLEX [Concomitant]
     Active Substance: CYANOCOBALAMIN\DEXPANTHENOL\NIACINAMIDE\PYRIDOXINE HYDROCHLORIDE\RIBOFLAVIN 5^-PHOSPHATE SODIUM\THIAMINE HYDROCHLORIDE\VITAMIN B COMPLEX
     Dosage: UNK
     Dates: start: 20140829
  41. VELPHORO [Concomitant]
     Active Substance: FERRIC OXYHYDROXIDE
     Dosage: 500 MG, TID
     Dates: start: 20170919
  42. SUCROFERRIC OXYHYDROXIDE [Concomitant]
     Active Substance: FERRIC OXYHYDROXIDE
     Dosage: 500 MG, TID
     Dates: start: 201802
  43. ATENOLOL. [Concomitant]
     Active Substance: ATENOLOL
  44. TRIAMCINOLONE [Concomitant]
     Active Substance: TRIAMCINOLONE
  45. OMEPRAZOLE. [Concomitant]
     Active Substance: OMEPRAZOLE

REACTIONS (28)
  - Sepsis [Unknown]
  - Pain [Recovering/Resolving]
  - Groin pain [Unknown]
  - Sciatica [Unknown]
  - Cellulitis [Recovered/Resolved]
  - Multi-organ disorder [Unknown]
  - Respiratory failure [Unknown]
  - Lung infiltration [Unknown]
  - Pulmonary arterial hypertension [Recovered/Resolved]
  - Arteriovenous fistula operation [Unknown]
  - Deep vein thrombosis postoperative [Unknown]
  - Pulmonary oedema [Unknown]
  - Right ventricular dysfunction [Recovered/Resolved]
  - Peripheral swelling [Unknown]
  - Haemodialysis [Recovering/Resolving]
  - Arteriovenous fistula site haemorrhage [Recovered/Resolved]
  - Pyrexia [Unknown]
  - Heart rate increased [Recovered/Resolved]
  - Hypotension [Recovering/Resolving]
  - Condition aggravated [Recovering/Resolving]
  - Fluid overload [Unknown]
  - Pericardial effusion [Recovered/Resolved]
  - Musculoskeletal pain [Unknown]
  - Pain in extremity [Unknown]
  - Cardiomegaly [Unknown]
  - Chills [Recovering/Resolving]
  - Influenza [Unknown]
  - Sinus tachycardia [Recovering/Resolving]

NARRATIVE: CASE EVENT DATE: 20180224
